FAERS Safety Report 8393336-3 (Version None)
Quarter: 2012Q2

REPORT INFORMATION
  Report Type: 
  Country: None (occurrence: None)
  Receive Date: 20120529
  Receipt Date: 20120518
  Transmission Date: 20120825
  Serious: Yes (Hospitalization)
  Sender: FDA-Public Use
  Company Number: US-JNJFOC-20120516173

PATIENT
  Sex: Female
  Weight: 58.6 kg

DRUGS (40)
  1. BENTYL [Concomitant]
  2. BUPIVACAINE HCL [Concomitant]
  3. TYLENOL [Concomitant]
  4. ONDANSETRON [Concomitant]
  5. POTASSIUM CHLORIDE [Concomitant]
  6. BENADRYL [Concomitant]
  7. MIDAZOLAM [Concomitant]
  8. NEOSTIGMINE [Concomitant]
  9. AZITHROMYCIN [Concomitant]
  10. ZYDONE [Concomitant]
  11. IMODIUM [Concomitant]
  12. LIDOCAINE [Concomitant]
  13. SODIUM CHLORIDE [Concomitant]
  14. ALL OTHER THERAPEUTIC PRODUCTS [Concomitant]
  15. ISOFLURANE [Concomitant]
  16. GLYCOPYRROLATE [Concomitant]
  17. AMOXICILLIN [Concomitant]
  18. SIMETHICONE [Concomitant]
  19. PROMETHAZINE [Concomitant]
  20. ATIVAN [Concomitant]
  21. ROCURONIUM BROMIDE [Concomitant]
  22. HYOSCYAMINE [Concomitant]
  23. SCOPOLAMINE [Concomitant]
  24. DEXAMETHASONE [Concomitant]
  25. PHENYLEPHRINE HCL [Concomitant]
  26. LACTATED RINGER'S [Concomitant]
  27. ERTAPENEM [Concomitant]
  28. FENTANYL-100 [Concomitant]
  29. REMICADE [Suspect]
     Indication: COLITIS ULCERATIVE
     Route: 042
     Dates: start: 20110902, end: 20111013
  30. HYDROMORPHONE HCL [Concomitant]
  31. HEPARIN [Concomitant]
  32. DEXMEDETOMODINE HYDROCHLORIDE [Concomitant]
  33. ALL OTHER THERAPEUTIC PRODUCTS [Concomitant]
  34. TRIMETHOPRIM [Concomitant]
  35. MAGNESIUM OXIDE [Concomitant]
  36. VOLUVEN [Concomitant]
  37. VITAMIN D [Concomitant]
  38. FLOMAX [Concomitant]
  39. OXYCODONE HCL [Concomitant]
  40. PROPOFOL [Concomitant]

REACTIONS (1)
  - ABSCESS [None]
